FAERS Safety Report 9105618 (Version 4)
Quarter: 2013Q2

REPORT INFORMATION
  Report Type: Spontaneous
  Country: US (occurrence: US)
  Receive Date: 20130220
  Receipt Date: 20130405
  Transmission Date: 20140414
  Serious: Yes (Hospitalization)
  Sender: FDA-Public Use
  Company Number: US-GILEAD-2013-0070073

PATIENT
  Sex: Female

DRUGS (4)
  1. LETAIRIS [Suspect]
     Indication: COR PULMONALE CHRONIC
     Dosage: 10 MG, QD
     Dates: start: 20090427
  2. LETAIRIS [Suspect]
     Indication: PULMONARY HYPERTENSION
  3. ENBREL [Suspect]
     Indication: RHEUMATOID ARTHRITIS
  4. REMODULIN [Concomitant]

REACTIONS (3)
  - Pneumonia [Recovered/Resolved]
  - Dehydration [Unknown]
  - Application site erythema [Unknown]
